FAERS Safety Report 24405501 (Version 1)
Quarter: 2024Q4

REPORT INFORMATION
  Report Type: Spontaneous
  Country: US (occurrence: US)
  Receive Date: 20241007
  Receipt Date: 20241007
  Transmission Date: 20250115
  Serious: Yes (Life-Threatening, Hospitalization)
  Sender: AMGEN
  Company Number: US-AMGEN-USASP2024196499

PATIENT
  Age: 53 Year
  Sex: Male

DRUGS (4)
  1. PREDNISONE [Suspect]
     Active Substance: PREDNISONE
     Indication: Obstructive sleep apnoea syndrome
     Dosage: 60 MILLIGRAM, QD
     Route: 065
  2. PREDNISONE [Suspect]
     Active Substance: PREDNISONE
     Indication: Deep vein thrombosis
  3. OXYGEN [Concomitant]
     Active Substance: OXYGEN
     Indication: Obstructive sleep apnoea syndrome
     Dosage: UNK
     Route: 065
  4. OXYGEN [Concomitant]
     Active Substance: OXYGEN
     Indication: Deep vein thrombosis

REACTIONS (7)
  - Acute right ventricular failure [Unknown]
  - Pulmonary hypertension [Unknown]
  - Pulmonary veno-occlusive disease [Unknown]
  - Respiratory failure [Unknown]
  - Pneumothorax spontaneous [Unknown]
  - Cardiogenic shock [Unknown]
  - Off label use [Unknown]
